FAERS Safety Report 16269323 (Version 2)
Quarter: 2022Q3

REPORT INFORMATION
  Report Type: Spontaneous
  Country: US (occurrence: CA)
  Receive Date: 20190503
  Receipt Date: 20220909
  Transmission Date: 20221027
  Serious: Yes (Other)
  Sender: FDA-Public Use
  Company Number: US-BAYER-2019-052847

PATIENT

DRUGS (1)
  1. XARELTO [Suspect]
     Active Substance: RIVAROXABAN
     Indication: Product used for unknown indication
     Dosage: UNK
     Route: 048

REACTIONS (7)
  - Facial paralysis [Unknown]
  - Hemianaesthesia [Unknown]
  - Aphasia [Recovering/Resolving]
  - Muscular weakness [Not Recovered/Not Resolved]
  - Hypersensitivity [Unknown]
  - Rhinorrhoea [Unknown]
  - Periorbital swelling [Unknown]
